FAERS Safety Report 20913003 (Version 1)
Quarter: 2022Q2

REPORT INFORMATION
  Report Type: Spontaneous
  Country: US (occurrence: US)
  Receive Date: 20220603
  Receipt Date: 20220603
  Transmission Date: 20220721
  Serious: Yes (Death, Other)
  Sender: FDA-Public Use
  Company Number: US-BRISTOL-MYERS SQUIBB COMPANY-2022-049428

PATIENT
  Age: 89 Year
  Sex: Female

DRUGS (18)
  1. ELIQUIS [Suspect]
     Active Substance: APIXABAN
     Indication: Product used for unknown indication
     Dosage: DOSE : 2.5MG;     FREQ : TWICE A DAY
     Route: 048
  2. VITAMIN E [Concomitant]
     Active Substance: .ALPHA.-TOCOPHEROL
  3. HYDROXYUREA [Concomitant]
     Active Substance: HYDROXYUREA
  4. VITAMINS [Concomitant]
     Active Substance: VITAMINS
  5. ATORVASTATIN [Concomitant]
     Active Substance: ATORVASTATIN
  6. LEVOTHYROXINE [Concomitant]
     Active Substance: LEVOTHYROXINE
  7. METOPROLOL [Concomitant]
     Active Substance: METOPROLOL
  8. LOSARTAN [Concomitant]
     Active Substance: LOSARTAN
  9. GLUCOSAMINE [Concomitant]
     Active Substance: GLUCOSAMINE
  10. ARICEPT [Concomitant]
     Active Substance: DONEPEZIL HYDROCHLORIDE
  11. MEMANTINE [Concomitant]
     Active Substance: MEMANTINE
  12. LORATADINE [Concomitant]
     Active Substance: LORATADINE
  13. FUROSEMIDE [Concomitant]
     Active Substance: FUROSEMIDE
  14. VITAMIN D [Concomitant]
     Active Substance: VITAMIN D NOS
  15. OMEPRAZOLE [Concomitant]
     Active Substance: OMEPRAZOLE
  16. GABAPENTIN [Concomitant]
     Active Substance: GABAPENTIN
  17. FLUTICASONE [Concomitant]
     Active Substance: FLUTICASONE
  18. ADVAIR HFA [Concomitant]
     Active Substance: FLUTICASONE PROPIONATE\SALMETEROL XINAFOATE

REACTIONS (1)
  - Cardiac failure [Fatal]

NARRATIVE: CASE EVENT DATE: 20220510
